FAERS Safety Report 24160685 (Version 2)
Quarter: 2024Q3

REPORT INFORMATION
  Report Type: Report from Study
  Country: DE (occurrence: DE)
  Receive Date: 20240801
  Receipt Date: 20240809
  Transmission Date: 20241016
  Serious: Yes (Hospitalization, Other)
  Sender: BAXTER
  Company Number: DE-BAXTER-2024BAX021901

PATIENT
  Age: 71 Year
  Sex: Male

DRUGS (7)
  1. AMINO ACIDS\DEXTROSE\ELECTROLYTES NOS\SOYBEAN OIL [Suspect]
     Active Substance: AMINO ACIDS\DEXTROSE\ELECTROLYTES NOS\SOYBEAN OIL
     Indication: Parenteral nutrition
     Dosage: 1820 ML (MILLILITER) AT AN UNSPECIFIED FREQUENCY (1988 KCAL)
     Route: 042
     Dates: start: 20240628, end: 20240720
  2. AMINO ACIDS\DEXTROSE\ELECTROLYTES NOS\SOYBEAN OIL [Suspect]
     Active Substance: AMINO ACIDS\DEXTROSE\ELECTROLYTES NOS\SOYBEAN OIL
     Dosage: 1820 ML (MILLILITER) AT AN UNSPECIFIED FREQUENCY (1988 KCAL)
     Route: 042
     Dates: start: 20240802
  3. CERNEVIT [Suspect]
     Active Substance: VITAMINS
     Indication: Parenteral nutrition
     Dosage: 750 (MG) MILLIGRAM AT AN UNSPECIFIED FREQUENCY
     Route: 042
     Dates: start: 20240628, end: 20240720
  4. CERNEVIT [Suspect]
     Active Substance: VITAMINS
     Dosage: 750 (MG) MILLIGRAM AT AN UNSPECIFIED FREQUENCY
     Route: 042
     Dates: start: 20240802
  5. ELECTROLYTES NOS\MINERALS [Suspect]
     Active Substance: ELECTROLYTES NOS\MINERALS
     Indication: Parenteral nutrition
     Dosage: (MANUFACTURER: LABORATOIRE AGUETTANT S.A.S.) 10 ML (MILLILITER) AT AN UNSPECIFIED FREQUENCY
     Route: 042
     Dates: start: 20240628, end: 20240720
  6. ELECTROLYTES NOS\MINERALS [Suspect]
     Active Substance: ELECTROLYTES NOS\MINERALS
     Dosage: (MANUFACTURER: LABORATOIRE AGUETTANT S.A.S.) 10 ML (MILLILITER) AT AN UNSPECIFIED FREQUENCY
     Route: 042
     Dates: start: 20240802
  7. UNSPECIFIED INGREDIENT [Suspect]
     Active Substance: UNSPECIFIED INGREDIENT
     Route: 065

REACTIONS (5)
  - Urinary tract infection [Unknown]
  - Pyrexia [Recovered/Resolved]
  - Thrombosis [Unknown]
  - Chills [Recovered/Resolved]
  - Oropharyngeal pain [Not Recovered/Not Resolved]

NARRATIVE: CASE EVENT DATE: 20240714
